FAERS Safety Report 23990886 (Version 1)
Quarter: 2024Q2

REPORT INFORMATION
  Report Type: Spontaneous
  Country: US (occurrence: US)
  Receive Date: 20240619
  Receipt Date: 20240619
  Transmission Date: 20240716
  Serious: Yes (Other)
  Sender: FDA-Public Use
  Company Number: US-AMGEN-USASP2024117429

PATIENT
  Age: 62 Year
  Sex: Male
  Weight: 86.984 kg

DRUGS (1)
  1. KANJINTI [Suspect]
     Active Substance: TRASTUZUMAB-ANNS
     Indication: Oesophageal carcinoma
     Dosage: DOSE ORDERED:  525 MG (DOSE REQUESTED:  600 MG) KANJINTI 150 MG X FOUR VIALS
     Route: 065

REACTIONS (1)
  - Atrial fibrillation [Unknown]

NARRATIVE: CASE EVENT DATE: 20240612
